FAERS Safety Report 9278184 (Version 1)
Quarter: 2013Q2

REPORT INFORMATION
  Report Type: Spontaneous
  Country: US (occurrence: US)
  Receive Date: 20130508
  Receipt Date: 20130508
  Transmission Date: 20140414
  Serious: Yes (Hospitalization)
  Sender: FDA-Public Use
  Company Number: US-MYLANLABS-2013S1009176

PATIENT
  Age: 32 Year
  Sex: Female
  Weight: 131.54 kg

DRUGS (1)
  1. BUPROPION HYDROCHLORIDE EXTENDED-RELEASE TABLETS USP (XL) [Suspect]
     Indication: DEPRESSION
     Route: 048
     Dates: start: 2011, end: 201304

REACTIONS (2)
  - Heart injury [Not Recovered/Not Resolved]
  - Chest pain [Recovered/Resolved]
